FAERS Safety Report 10094189 (Version 1)
Quarter: 2014Q2

REPORT INFORMATION
  Report Type: Spontaneous
  Country: US (occurrence: US)
  Receive Date: 20140422
  Receipt Date: 20140422
  Transmission Date: 20141212
  Serious: Yes (Other)
  Sender: FDA-Public Use
  Company Number: US-ACCORD-023147

PATIENT
  Age: 44 Year
  Sex: Female
  Weight: 68.18 kg

DRUGS (2)
  1. FLUOROURACIL [Suspect]
     Indication: SCAR
     Dosage: 1 INJECTION
     Dates: start: 20120829, end: 20120829
  2. KENALOG [Concomitant]
     Indication: PRODUCT USED FOR UNKNOWN INDICATION
     Route: 065

REACTIONS (2)
  - Off label use [Unknown]
  - Wound [Not Recovered/Not Resolved]
